FAERS Safety Report 7453350-9 (Version None)
Quarter: 2011Q2

REPORT INFORMATION
  Report Type: 
  Country: None (occurrence: None)
  Receive Date: 20110502
  Receipt Date: 20110419
  Transmission Date: 20111010
  Serious: Yes (Hospitalization)
  Sender: FDA-Public Use
  Company Number: PHHY2011US12841

PATIENT
  Sex: Male
  Weight: 99.32 kg

DRUGS (2)
  1. AFINITOR [Suspect]
     Indication: RENAL CANCER
     Dosage: 5 MG, DAILY
     Route: 048
     Dates: start: 20101222
  2. PREDNISONE [Concomitant]
     Dosage: 10 MG, UNK
     Route: 048
     Dates: start: 20110322

REACTIONS (2)
  - NEPHROLITHIASIS [None]
  - OEDEMA PERIPHERAL [None]
